FAERS Safety Report 4630531-0 (Version None)
Quarter: 2005Q2

REPORT INFORMATION
  Report Type: 
  Country: None (occurrence: None)
  Receive Date: 20050408
  Receipt Date: 20050331
  Transmission Date: 20051028
  Serious: Yes (Other)
  Sender: FDA-Public Use
  Company Number: US-GLAXOSMITHKLINE-A0552145A

PATIENT

DRUGS (1)
  1. AVODART [Suspect]

REACTIONS (1)
  - HEPATIC ENZYME INCREASED [None]
